FAERS Safety Report 7383484-9 (Version None)
Quarter: 2011Q1

REPORT INFORMATION
  Report Type: 
  Country: None (occurrence: None)
  Receive Date: 20110330
  Receipt Date: 20110321
  Transmission Date: 20110831
  Serious: Yes (Hospitalization, Other)
  Sender: FDA-Public Use
  Company Number: AU-ELI_LILLY_AND_COMPANY-AU201103006015

PATIENT

DRUGS (4)
  1. SEROQUEL [Concomitant]
     Route: 064
  2. LITHIUM CARBONATE [Concomitant]
     Route: 064
  3. BLACKMORES HIGH-POTENCY B PLUS C [Concomitant]
     Route: 064
  4. FLUOXETINE [Suspect]
     Route: 064

REACTIONS (7)
  - FOETAL DISTRESS SYNDROME [None]
  - IRRITABILITY [None]
  - DRUG EXPOSURE DURING PREGNANCY [None]
  - HYPOVENTILATION [None]
  - DRUG WITHDRAWAL SYNDROME NEONATAL [None]
  - SNEEZING [None]
  - TREMOR [None]
